FAERS Safety Report 19366837 (Version 1)
Quarter: 2021Q2

REPORT INFORMATION
  Report Type: Spontaneous
  Country: IT (occurrence: IT)
  Receive Date: 20210603
  Receipt Date: 20210603
  Transmission Date: 20210717
  Serious: Yes (Life-Threatening, Hospitalization, Other)
  Sender: FDA-Public Use
  Company Number: IT-LUPIN PHARMACEUTICALS INC.-2021-08300

PATIENT
  Age: 70 Year
  Sex: Male

DRUGS (31)
  1. GABAPENTIN. [Suspect]
     Active Substance: GABAPENTIN
     Indication: PAIN IN EXTREMITY
     Dosage: 100 MILLIGRAM
     Route: 048
     Dates: start: 20200115, end: 20200126
  2. GABAPENTIN. [Interacting]
     Active Substance: GABAPENTIN
     Dosage: 300 MILLIGRAM, QD, IN EVENING
     Route: 048
     Dates: start: 20200224
  3. GABAPENTIN. [Interacting]
     Active Substance: GABAPENTIN
     Dosage: 300 MILLIGRAM, BID (DOSE INCREASED)
     Route: 048
     Dates: start: 20200314
  4. MACROGOL [Concomitant]
     Active Substance: POLYETHYLENE GLYCOLS
     Indication: NEURALGIA
  5. BISOPROLOL [Concomitant]
     Active Substance: BISOPROLOL
     Indication: NEURALGIA
     Dosage: 25 MILLIGRAM, QD
     Route: 048
  6. IRON [Concomitant]
     Active Substance: IRON
     Indication: SUPPLEMENTATION THERAPY
     Dosage: 1 DOSAGE FORM, QD (ONE VIAL PER DAY)
     Route: 042
  7. BACLOFEN. [Interacting]
     Active Substance: BACLOFEN
     Indication: MUSCLE SPASTICITY
     Dosage: 25 MILLIGRAM
     Route: 048
     Dates: start: 20200622
  8. VANCOMYCIN [Concomitant]
     Active Substance: VANCOMYCIN
     Indication: NEURALGIA
     Dosage: 0.25 DOSAGE FORM, ONE?FOURTH OF A VIAL FOUR TIMES PER DAY
     Route: 048
     Dates: start: 20200622
  9. BACLOFEN. [Interacting]
     Active Substance: BACLOFEN
     Indication: PAIN IN EXTREMITY
     Dosage: 25 MILLIGRAM, TID
     Route: 048
     Dates: start: 20191221
  10. PANTOPRAZOLE [Concomitant]
     Active Substance: PANTOPRAZOLE
     Dosage: 40 MILLIGRAM
     Route: 048
     Dates: start: 20200622
  11. AMLODIPINE [Concomitant]
     Active Substance: AMLODIPINE BESYLATE
     Indication: NEURALGIA
     Dosage: 2.5 MILLIGRAM, QD
     Route: 048
  12. MACROGOL [Concomitant]
     Active Substance: POLYETHYLENE GLYCOLS
     Indication: FUNCTIONAL GASTROINTESTINAL DISORDER
     Dosage: UNK
     Route: 048
  13. GABAPENTIN. [Interacting]
     Active Substance: GABAPENTIN
     Dosage: 300 MILLIGRAM
     Route: 048
     Dates: start: 20200622
  14. SODIUM CHLORIDE. [Concomitant]
     Active Substance: SODIUM CHLORIDE
     Indication: NEURALGIA
     Dosage: 500 MILLILITER, BID
     Route: 042
  15. VANCOMYCIN [Concomitant]
     Active Substance: VANCOMYCIN
     Indication: CLOSTRIDIUM DIFFICILE INFECTION
     Dosage: 0.25 DOSAGE FORM, QID
     Route: 048
  16. SIMETHICONE (DIMETHICONE) [Concomitant]
     Active Substance: DIMETHICONE
     Indication: NEURALGIA
     Dosage: 80 MILLIGRAM, TID
     Route: 048
  17. SIMETHICONE (DIMETHICONE) [Concomitant]
     Active Substance: DIMETHICONE
     Dosage: 80 MILLIGRAM
     Route: 048
     Dates: start: 20200622
  18. FONDAPARINUX [Concomitant]
     Active Substance: FONDAPARINUX
     Indication: NEURALGIA
     Dosage: UNK, QD,  2.5 MG/0.5 ML
     Route: 058
  19. ZOLPIDEM [Concomitant]
     Active Substance: ZOLPIDEM TARTRATE
     Indication: SLEEP DISORDER
     Dosage: 10 MILLIGRAM, PRN, ONLY IF NEEDED TO SLEEP
     Route: 048
  20. GABAPENTIN. [Interacting]
     Active Substance: GABAPENTIN
     Dosage: 100 MILLIGRAM, DOSE DECRESED
     Route: 048
  21. FUROSEMIDE. [Concomitant]
     Active Substance: FUROSEMIDE
     Indication: NEURALGIA
     Dosage: 25 MILLIGRAM, QD
     Route: 048
  22. CORDARONE [Concomitant]
     Active Substance: AMIODARONE HYDROCHLORIDE
     Indication: NEURALGIA
     Dosage: 200 MILLIGRAM, QD
     Route: 048
  23. CARDIOASPIRIN [Concomitant]
     Active Substance: ASPIRIN
     Indication: NEURALGIA
     Dosage: 100 MILLIGRAM, QD
     Route: 048
  24. SILODOSIN. [Concomitant]
     Active Substance: SILODOSIN
     Indication: NEURALGIA
     Dosage: 8 MILLIGRAM, QD
     Route: 048
  25. ZOLPIDEM [Concomitant]
     Active Substance: ZOLPIDEM TARTRATE
     Indication: NEURALGIA
  26. SODIUM CHLORIDE. [Concomitant]
     Active Substance: SODIUM CHLORIDE
     Dosage: 500 MILLILITER
     Route: 042
     Dates: start: 20200622
  27. PANTOPRAZOLE [Concomitant]
     Active Substance: PANTOPRAZOLE
     Indication: NEURALGIA
     Dosage: 40 MILLIGRAM, QD
     Route: 048
  28. POTASSIUM [Concomitant]
     Active Substance: POTASSIUM
     Indication: NEURALGIA
     Dosage: 600 MILLIGRAM, BID
     Route: 048
  29. POTASSIUM [Concomitant]
     Active Substance: POTASSIUM
     Indication: MINERAL SUPPLEMENTATION
     Dosage: 600 MILLIGRAM
     Route: 048
     Dates: start: 20200622
  30. FUROSEMIDE. [Concomitant]
     Active Substance: FUROSEMIDE
     Dosage: 25 MILLIGRAM
     Route: 048
     Dates: start: 20200622
  31. IRON [Concomitant]
     Active Substance: IRON
     Indication: NEURALGIA
     Dosage: 5 MILLIGRAM
     Route: 042
     Dates: start: 20200622

REACTIONS (5)
  - Coma [Recovered/Resolved]
  - Overdose [Unknown]
  - Somnolence [Unknown]
  - Therapy non-responder [Unknown]
  - Drug interaction [Unknown]

NARRATIVE: CASE EVENT DATE: 20200126
